FAERS Safety Report 10133694 (Version 2)
Quarter: 2014Q2

REPORT INFORMATION
  Report Type: Spontaneous
  Country: US (occurrence: US)
  Receive Date: 20140428
  Receipt Date: 20140512
  Transmission Date: 20141212
  Serious: Yes (Other)
  Sender: FDA-Public Use
  Company Number: US-TAKEDA-2014TUS003243

PATIENT
  Age: 32 Year
  Sex: Female
  Weight: 77.37 kg

DRUGS (1)
  1. BRINTELLIX [Suspect]
     Indication: DEPRESSION
     Dosage: 5 MG, QD
     Route: 048
     Dates: start: 20140418, end: 20140422

REACTIONS (4)
  - Suicidal ideation [Recovering/Resolving]
  - Depression [Unknown]
  - Negative thoughts [Recovering/Resolving]
  - Bulimia nervosa [None]
